FAERS Safety Report 7180485-0 (Version None)
Quarter: 2010Q4

REPORT INFORMATION
  Report Type: 
  Country: None (occurrence: None)
  Receive Date: 20101123
  Receipt Date: 20100812
  Transmission Date: 20110411
  Serious: No
  Sender: FDA-Public Use
  Company Number: 017137

PATIENT
  Sex: Female
  Weight: 69.4 kg

DRUGS (13)
  1. CIMZIA [Suspect]
     Indication: CROHN'S DISEASE
     Dosage: (TWO SHOTS SUBCUTANEOUS)
     Route: 058
     Dates: start: 20100608
  2. ASACOL [Concomitant]
  3. PREDNISONE [Concomitant]
  4. NEXIUM [Concomitant]
  5. POTASSIUM [Concomitant]
  6. AMLODIPINE BESYLATE AND VALSARTAN [Concomitant]
  7. GUANFACINE HYDROCHLORIDE [Concomitant]
  8. CRESTOR [Concomitant]
  9. ASPIRIN [Concomitant]
  10. VITAMIN D [Concomitant]
  11. IRON [Concomitant]
  12. LOMOTIL /00034001/ [Concomitant]
  13. HUMULIN 70/30 [Concomitant]

REACTIONS (3)
  - ABDOMINAL PAIN [None]
  - DIARRHOEA [None]
  - DIZZINESS [None]
